FAERS Safety Report 5696525-1 (Version None)
Quarter: 2008Q2

REPORT INFORMATION
  Report Type: 
  Country: None (occurrence: None)
  Receive Date: 20080408
  Receipt Date: 20080407
  Transmission Date: 20081010
  Serious: Yes (Life-Threatening, Other)
  Sender: FDA-Public Use
  Company Number: GB-JNJFOC-20080400511

PATIENT
  Age: 70 Year
  Weight: 57.5 kg

DRUGS (6)
  1. IBUPROFEN [Suspect]
     Indication: DRUG USE FOR UNKNOWN INDICATION
     Route: 048
  2. AUGMENTIN '125' [Suspect]
     Indication: ABSCESS
     Route: 048
  3. OMEPRAZOLE [Concomitant]
     Indication: GASTRITIS
     Route: 048
  4. LACTULOSE [Concomitant]
     Indication: CONSTIPATION
     Route: 048
  5. PARACETAMOL [Concomitant]
     Indication: PAIN
     Route: 048
  6. MOVICOL [Concomitant]
     Indication: CONSTIPATION
     Route: 048

REACTIONS (2)
  - DUODENAL ULCER HAEMORRHAGE [None]
  - JAUNDICE CHOLESTATIC [None]
